FAERS Safety Report 17271682 (Version 2)
Quarter: 2020Q1

REPORT INFORMATION
  Report Type: Spontaneous
  Country: US (occurrence: US)
  Receive Date: 20200115
  Receipt Date: 20200122
  Transmission Date: 20200409
  Serious: No
  Sender: FDA-Public Use
  Company Number: US-JNJFOC-20200110262

PATIENT
  Sex: Female
  Weight: 54.48 kg

DRUGS (1)
  1. WOMENS ROGAINE UNSCENTED [Suspect]
     Active Substance: MINOXIDIL
     Indication: ALOPECIA
     Dosage: EVERY NIGHT, JUST AS SAID IN THE BOTTLE
     Route: 061

REACTIONS (1)
  - Acne [Not Recovered/Not Resolved]
